FAERS Safety Report 13137978 (Version 1)
Quarter: 2017Q1

REPORT INFORMATION
  Report Type: Spontaneous
  Country: US (occurrence: US)
  Receive Date: 20170123
  Receipt Date: 20170123
  Transmission Date: 20170428
  Serious: No
  Sender: FDA-Public Use
  Company Number: US-UNITED THERAPEUTICS-UNT-2016-009907

PATIENT
  Age: 6 Year
  Sex: Male

DRUGS (1)
  1. REMODULIN [Suspect]
     Active Substance: TREPROSTINIL
     Indication: PRODUCT USED FOR UNKNOWN INDICATION
     Dosage: 0.030 ?G/KG, CONTINUING
     Route: 058
     Dates: start: 201306

REACTIONS (3)
  - Infusion site inflammation [Unknown]
  - Condition aggravated [Unknown]
  - Infusion site pain [Unknown]

NARRATIVE: CASE EVENT DATE: 2013
